FAERS Safety Report 5519079-9 (Version None)
Quarter: 2007Q4

REPORT INFORMATION
  Report Type: 
  Country: None (occurrence: None)
  Receive Date: 20071116
  Receipt Date: 20071112
  Transmission Date: 20080405
  Serious: Yes (Hospitalization)
  Sender: FDA-Public Use
  Company Number: DE-JNJFOC-20071103579

PATIENT
  Age: 55 Year
  Sex: Female

DRUGS (19)
  1. HALOPERIDOL DECANOATE [Suspect]
     Route: 030
  2. HALOPERIDOL DECANOATE [Suspect]
     Indication: DRUG USE FOR UNKNOWN INDICATION
     Route: 030
  3. DIAZEPAM [Concomitant]
     Route: 048
  4. DIAZEPAM [Concomitant]
     Route: 048
  5. TAVOR [Concomitant]
     Route: 048
  6. TAVOR [Concomitant]
     Route: 048
  7. TAVOR [Concomitant]
     Route: 048
  8. TAVOR [Concomitant]
     Route: 048
  9. TAVOR [Concomitant]
     Route: 048
  10. L-THYROXIN [Concomitant]
     Route: 048
  11. DILATREND [Concomitant]
     Route: 048
  12. DILATREND [Concomitant]
     Route: 048
  13. DILATREND [Concomitant]
     Route: 048
  14. TOREM [Concomitant]
     Route: 048
  15. TOREM [Concomitant]
     Route: 048
  16. ENALAPRIL MALEATE [Concomitant]
     Route: 048
  17. ENALAPRIL MALEATE [Concomitant]
     Route: 048
  18. VIANI [Concomitant]
     Route: 048
  19. BERODUAL SPRAY [Concomitant]
     Route: 048

REACTIONS (4)
  - CYANOSIS [None]
  - HYPERTENSION [None]
  - SOMNOLENCE [None]
  - VENTRICULAR TACHYCARDIA [None]
